FAERS Safety Report 23024727 (Version 1)
Quarter: 2023Q4

REPORT INFORMATION
  Report Type: Spontaneous
  Country: NL (occurrence: NL)
  Receive Date: 20231004
  Receipt Date: 20231004
  Transmission Date: 20240109
  Serious: Yes (Disabling, Other)
  Sender: FDA-Public Use
  Company Number: NL-LRB-00908976

PATIENT
  Age: 35 Year
  Sex: Male
  Weight: 80 kg

DRUGS (2)
  1. LORAZEPAM [Suspect]
     Active Substance: LORAZEPAM
     Indication: Insomnia
     Dosage: 5 X DAAGS 1 STUK
     Route: 065
     Dates: start: 20220201
  2. INSULIN GLARGINE [Concomitant]
     Active Substance: INSULIN GLARGINE
     Dosage: INJECTIEVLOEISTOF, 200 EENHEDEN/ML (EENHEDEN PER MILLILITER)
     Route: 065

REACTIONS (1)
  - Restless legs syndrome [Not Recovered/Not Resolved]
